FAERS Safety Report 17742283 (Version 2)
Quarter: 2020Q2

REPORT INFORMATION
  Report Type: Spontaneous
  Country: CN (occurrence: CN)
  Receive Date: 20200504
  Receipt Date: 20200612
  Transmission Date: 20200714
  Serious: Yes (Hospitalization, Other)
  Sender: FDA-Public Use
  Company Number: CN-ROCHE-2594690

PATIENT
  Age: 76 Year
  Sex: Male

DRUGS (4)
  1. TOBRAMYCIN AND DEXAMETHASONE [Concomitant]
     Active Substance: DEXAMETHASONE\TOBRAMYCIN
     Indication: PRODUCT USED FOR UNKNOWN INDICATION
     Route: 065
  2. PRANOPROFEN [Concomitant]
     Active Substance: PRANOPROFEN
     Indication: PRODUCT USED FOR UNKNOWN INDICATION
     Route: 065
  3. RANIBIZUMAB. [Suspect]
     Active Substance: RANIBIZUMAB
     Indication: RETINAL VEIN OCCLUSION
     Route: 065
     Dates: start: 20200414
  4. LEVOFLOXACIN. [Concomitant]
     Active Substance: LEVOFLOXACIN
     Indication: PRODUCT USED FOR UNKNOWN INDICATION
     Route: 065

REACTIONS (8)
  - Ocular hyperaemia [Unknown]
  - Cataract [Unknown]
  - Vitreous haemorrhage [Unknown]
  - Retinal vein occlusion [Unknown]
  - Blindness [Unknown]
  - Endophthalmitis [Unknown]
  - Ocular discomfort [Unknown]
  - Eye swelling [Unknown]

NARRATIVE: CASE EVENT DATE: 20200420
